FAERS Safety Report 23056698 (Version 2)
Quarter: 2023Q4

REPORT INFORMATION
  Report Type: Report from Study
  Country: US (occurrence: US)
  Receive Date: 20231012
  Receipt Date: 20231020
  Transmission Date: 20240109
  Serious: No
  Sender: FDA-Public Use
  Company Number: US-ABBVIE-5444398

PATIENT
  Age: 84 Year
  Sex: Female
  Weight: 54 kg

DRUGS (1)
  1. HUMIRA [Suspect]
     Active Substance: ADALIMUMAB
     Indication: Crohn^s disease
     Dosage: FORM STRENGTH 40 MILLIGRAM
     Route: 058
     Dates: start: 2020

REACTIONS (7)
  - Injection site discharge [Not Recovered/Not Resolved]
  - Injection site reaction [Recovered/Resolved]
  - Rash [Unknown]
  - Injection site haemorrhage [Recovered/Resolved]
  - Autoimmune disorder [Unknown]
  - Crohn^s disease [Unknown]
  - Injection site reaction [Recovered/Resolved]

NARRATIVE: CASE EVENT DATE: 20230901
